FAERS Safety Report 22843269 (Version 8)
Quarter: 2024Q1

REPORT INFORMATION
  Report Type: Spontaneous
  Country: US (occurrence: US)
  Receive Date: 20230821
  Receipt Date: 20240123
  Transmission Date: 20240410
  Serious: No
  Sender: FDA-Public Use
  Company Number: US-PFIZER INC-202300276384

PATIENT
  Age: 12 Year
  Sex: Male
  Weight: 34.47 kg

DRUGS (2)
  1. GENOTROPIN [Suspect]
     Active Substance: SOMATROPIN
     Indication: Growth hormone deficiency
     Dosage: 1.2 MG, DAILY
  2. GENOTROPIN [Suspect]
     Active Substance: SOMATROPIN
     Dosage: 1.4 MG

REACTIONS (7)
  - Drug dose omission by device [Unknown]
  - Poor quality device used [Unknown]
  - Device occlusion [Unknown]
  - Device mechanical issue [Unknown]
  - Device use error [Unknown]
  - Device malfunction [Unknown]
  - Injection site erythema [Unknown]
